FAERS Safety Report 5384602-4 (Version None)
Quarter: 2007Q3

REPORT INFORMATION
  Report Type: 
  Country: None (occurrence: None)
  Receive Date: 20070711
  Receipt Date: 20070704
  Transmission Date: 20080115
  Serious: Yes (Death, Hospitalization)
  Sender: FDA-Public Use
  Company Number: IT-ROXANE LABORATORIES, INC-2007-BP-16888RO

PATIENT
  Age: 39 Year
  Sex: Male

DRUGS (6)
  1. DICLOFENAC [Suspect]
  2. IBUPROFEN [Suspect]
  3. ASPIRIN [Suspect]
  4. SIMVASTATIN [Suspect]
  5. GENTAMICIN [Suspect]
  6. DEFLAZACORT [Suspect]

REACTIONS (1)
  - TOXIC EPIDERMAL NECROLYSIS [None]
